FAERS Safety Report 7308694-8 (Version None)
Quarter: 2011Q1

REPORT INFORMATION
  Report Type: 
  Country: None (occurrence: None)
  Receive Date: 20110210
  Receipt Date: 20110202
  Transmission Date: 20110831
  Serious: Yes (Hospitalization, Other)
  Sender: FDA-Public Use
  Company Number: 2010SP039924

PATIENT
  Age: 32 Year
  Sex: Female
  Weight: 77.1115 kg

DRUGS (1)
  1. NUVARING [Suspect]
     Indication: CONTRACEPTION
     Dates: start: 20050330, end: 20060601

REACTIONS (12)
  - ROAD TRAFFIC ACCIDENT [None]
  - AMENORRHOEA [None]
  - PLEURITIC PAIN [None]
  - TEARFULNESS [None]
  - VENOUS THROMBOSIS [None]
  - DEPRESSION [None]
  - INFLUENZA [None]
  - MULTIPLE INJURIES [None]
  - DEEP VEIN THROMBOSIS [None]
  - DYSPNOEA [None]
  - VARICOSE VEIN [None]
  - ANXIETY [None]
